FAERS Safety Report 17979323 (Version 2)
Quarter: 2020Q3

REPORT INFORMATION
  Report Type: Spontaneous
  Country: CH (occurrence: CH)
  Receive Date: 20200703
  Receipt Date: 20200716
  Transmission Date: 20201103
  Serious: Yes (Other)
  Sender: FDA-Public Use
  Company Number: CH-VELOXIS PHARMACEUTICALS-2020VELCH-000592

PATIENT
  Age: 54 Year
  Sex: Male

DRUGS (4)
  1. MYCOPHENOLATE MOFETIL. [Suspect]
     Active Substance: MYCOPHENOLATE MOFETIL
     Indication: IMMUNOSUPPRESSION
     Dosage: UNKNOWN
     Route: 050
  2. ENVARSUS XR [Suspect]
     Active Substance: TACROLIMUS
     Indication: IMMUNOSUPPRESSION
     Dosage: UNKNOWN
     Route: 050
  3. PREDNISONE. [Suspect]
     Active Substance: PREDNISONE
     Indication: IMMUNOSUPPRESSION
     Dosage: UNKNOWN
     Route: 050
  4. DANAZOL. [Suspect]
     Active Substance: DANAZOL
     Indication: CONGENITAL DYSKERATOSIS
     Dosage: UNKNOWN
     Route: 050

REACTIONS (6)
  - Osteoporotic fracture [Unknown]
  - Lymphopenia [Unknown]
  - Chronic kidney disease [Unknown]
  - Infection in an immunocompromised host [Recovered/Resolved]
  - Normocytic anaemia [Unknown]
  - Off label use [Unknown]

NARRATIVE: CASE EVENT DATE: 2019
